FAERS Safety Report 8501883-6 (Version None)
Quarter: 2012Q3

REPORT INFORMATION
  Report Type: 
  Country: None (occurrence: None)
  Receive Date: 20120711
  Receipt Date: 20120704
  Transmission Date: 20120928
  Serious: Yes (Hospitalization)
  Sender: FDA-Public Use
  Company Number: PHHY2012CL030469

PATIENT
  Sex: Female

DRUGS (3)
  1. CLOZAPINE [Suspect]
     Indication: SCHIZOPHRENIA
     Dosage: 150 MG, DAILY
     Route: 048
     Dates: start: 20120306, end: 20120328
  2. HALDOL [Concomitant]
  3. LAMOTRIGINE [Concomitant]

REACTIONS (10)
  - ARTHRALGIA [None]
  - EOSINOPHIL COUNT INCREASED [None]
  - CHILLS [None]
  - CYANOSIS [None]
  - C-REACTIVE PROTEIN INCREASED [None]
  - DISCOMFORT [None]
  - HEADACHE [None]
  - MYALGIA [None]
  - PYREXIA [None]
  - CHEST PAIN [None]
